FAERS Safety Report 8654091 (Version 3)
Quarter: 2012Q4

REPORT INFORMATION
  Report Type: Report from Study
  Country: US (occurrence: US)
  Receive Date: 20120709
  Receipt Date: 20121022
  Transmission Date: 20130627
  Serious: Yes (Death, Other)
  Sender: FDA-Public Use
  Company Number: US-ASTELLAS-2012US004909

PATIENT
  Sex: Female

DRUGS (2)
  1. ERLOTINIB TABLET [Suspect]
     Indication: LUNG CARCINOMA CELL TYPE UNSPECIFIED STAGE 0
     Dosage: 150 mg, UID/QD
     Route: 048
     Dates: start: 20120418
  2. BLOOD PRESSURE MEDICATION [Concomitant]
     Indication: BLOOD PRESSURE
     Dosage: UNK
     Route: 065

REACTIONS (5)
  - Blood pressure increased [Unknown]
  - Heart rate increased [Unknown]
  - Aphonia [Unknown]
  - Rash [Unknown]
  - Malignant neoplasm progression [Fatal]
